APPROVED DRUG PRODUCT: XENON XE 133
Active Ingredient: XENON XE-133
Strength: 6.3mCi/ML
Dosage Form/Route: INJECTABLE;INJECTION
Application: N017283 | Product #001
Applicant: LANTHEUS MEDICAL IMAGING INC
Approved: Approved Prior to Jan 1, 1982 | RLD: No | RS: No | Type: DISCN